FAERS Safety Report 15620372 (Version 2)
Quarter: 2018Q4

REPORT INFORMATION
  Report Type: Report from Study
  Country: CA (occurrence: CA)
  Receive Date: 20181115
  Receipt Date: 20181205
  Transmission Date: 20190205
  Serious: Yes (Other)
  Sender: FDA-Public Use
  Company Number: CA-TEVA-2018-CA-976069

PATIENT
  Age: 81 Year
  Sex: Female

DRUGS (6)
  1. SANDOSTATIN [Suspect]
     Active Substance: OCTREOTIDE ACETATE
     Indication: NEUROENDOCRINE TUMOUR OF THE LUNG
     Route: 058
  2. CODEINE [Suspect]
     Active Substance: CODEINE
     Indication: PRODUCT USED FOR UNKNOWN INDICATION
     Route: 065
  3. SANDOSTATIN [Suspect]
     Active Substance: OCTREOTIDE ACETATE
     Indication: LUNG NEOPLASM
     Route: 058
  4. SANDOSTATIN [Suspect]
     Active Substance: OCTREOTIDE ACETATE
     Route: 030
  5. MORPHINE [Suspect]
     Active Substance: MORPHINE
     Indication: PRODUCT USED FOR UNKNOWN INDICATION
     Route: 065
  6. SANDOSTATIN [Suspect]
     Active Substance: OCTREOTIDE ACETATE
     Indication: METASTASES TO LIVER
     Route: 030

REACTIONS (25)
  - Abdominal pain upper [Recovered/Resolved]
  - Blindness [Recovered/Resolved]
  - Cough [Recovered/Resolved]
  - Lower respiratory tract infection [Recovered/Resolved]
  - Abdominal pain [Recovered/Resolved]
  - Fall [Recovered/Resolved]
  - Dyspnoea [Recovered/Resolved]
  - Metastases to eye [Recovered/Resolved]
  - General physical health deterioration [Recovered/Resolved]
  - Blood pressure diastolic increased [Recovered/Resolved]
  - Pain [Recovered/Resolved]
  - Pyrexia [Recovered/Resolved]
  - Hypokinesia [Recovered/Resolved]
  - Blood pressure systolic increased [Recovered/Resolved]
  - Chills [Recovered/Resolved]
  - Malignant neoplasm progression [Recovered/Resolved]
  - Neoplasm progression [Recovered/Resolved]
  - Respiratory rate increased [Recovered/Resolved]
  - Eating disorder [Recovered/Resolved]
  - Diplopia [Recovered/Resolved]
  - Lethargy [Recovered/Resolved]
  - Malaise [Recovered/Resolved]
  - Metastasis [Recovered/Resolved]
  - Irritable bowel syndrome [Recovered/Resolved]
  - Weight decreased [Recovered/Resolved]
